FAERS Safety Report 23914558 (Version 2)
Quarter: 2024Q2

REPORT INFORMATION
  Report Type: Spontaneous
  Country: US (occurrence: US)
  Receive Date: 20240529
  Receipt Date: 20240604
  Transmission Date: 20240716
  Serious: Yes (Hospitalization, Other)
  Sender: FDA-Public Use
  Company Number: US-SUN PHARMACEUTICAL INDUSTRIES LTD-2024R1-448018

PATIENT
  Age: 57 Year
  Sex: Male

DRUGS (1)
  1. SOTALOL [Suspect]
     Active Substance: SOTALOL
     Indication: Atrial fibrillation
     Dosage: 40 MILLIGRAM, BID
     Route: 065

REACTIONS (1)
  - BRASH syndrome [Recovering/Resolving]
